FAERS Safety Report 13059935 (Version 1)
Quarter: 2016Q4

REPORT INFORMATION
  Report Type: Spontaneous
  Country: US (occurrence: US)
  Receive Date: 20161223
  Receipt Date: 20161223
  Transmission Date: 20170207
  Serious: No
  Sender: FDA-Public Use
  Company Number: US-ELI_LILLY_AND_COMPANY-US201612004514

PATIENT
  Sex: Male

DRUGS (1)
  1. HUMATROPE [Suspect]
     Active Substance: SOMATROPIN
     Indication: GROWTH RETARDATION
     Dosage: 1.0 MG, 6/W
     Route: 065
     Dates: start: 20161114, end: 20161128

REACTIONS (6)
  - Abnormal behaviour [Unknown]
  - Pruritus [Unknown]
  - Urticaria [Unknown]
  - Respiratory disorder [Unknown]
  - Injection site pruritus [Unknown]
  - Nasal congestion [Unknown]
